FAERS Safety Report 4925941-8 (Version None)
Quarter: 2006Q1

REPORT INFORMATION
  Report Type: 
  Country: None (occurrence: None)
  Receive Date: 20060228
  Receipt Date: 20050419
  Transmission Date: 20060701
  Serious: No
  Sender: FDA-Public Use
  Company Number: US-GLAXOSMITHKLINE-A0554815A

PATIENT
  Age: 33 Year
  Sex: Female

DRUGS (3)
  1. LAMICTAL [Suspect]
     Indication: BIPOLAR DISORDER
     Dosage: 25MG TWICE PER DAY
     Route: 048
     Dates: start: 20050411, end: 20050415
  2. WELLBUTRIN [Concomitant]
  3. TOPAMAX [Concomitant]

REACTIONS (8)
  - ARTHROPOD BITE [None]
  - BURNING SENSATION [None]
  - EYE SWELLING [None]
  - OEDEMA GENITAL [None]
  - RASH [None]
  - SWELLING FACE [None]
  - VAGINAL PAIN [None]
  - VULVOVAGINAL DRYNESS [None]
